FAERS Safety Report 5904671-X (Version None)
Quarter: 2008Q4

REPORT INFORMATION
  Report Type: 
  Country: None (occurrence: None)
  Receive Date: 20081001
  Receipt Date: 20080923
  Transmission Date: 20090506
  Serious: Yes (Other)
  Sender: FDA-Public Use
  Company Number: US-BAYER-200834203NA

PATIENT
  Sex: Female

DRUGS (3)
  1. CIPRO [Suspect]
     Indication: URINARY TRACT INFECTION
     Route: 048
     Dates: start: 20070101
  2. ATIVAN [Concomitant]
  3. LEVAQUIN [Concomitant]
     Dates: start: 20071001

REACTIONS (9)
  - ANXIETY [None]
  - ARTHRITIS [None]
  - FIBROMYALGIA [None]
  - JOINT STIFFNESS [None]
  - MENISCUS LESION [None]
  - NERVOUS SYSTEM DISORDER [None]
  - PAIN [None]
  - PAIN IN EXTREMITY [None]
  - TENDONITIS [None]
